FAERS Safety Report 24343537 (Version 1)
Quarter: 2024Q3

REPORT INFORMATION
  Report Type: Spontaneous
  Country: US (occurrence: US)
  Receive Date: 20240920
  Receipt Date: 20240920
  Transmission Date: 20241017
  Serious: Yes (Death, Hospitalization)
  Sender: PFIZER
  Company Number: US-PFIZER INC-PV202400121760

PATIENT
  Age: 31 Year
  Sex: Male
  Weight: 77.4 kg

DRUGS (3)
  1. PACLITAXEL [Suspect]
     Active Substance: PACLITAXEL
     Indication: Neuroendocrine tumour
     Dosage: EVERY 21 DAYS
     Dates: start: 20240612
  2. STIMUFEND [Suspect]
     Active Substance: PEGFILGRASTIM-FPGK
     Indication: Neuroendocrine tumour
     Dosage: 6 MG
     Route: 058
     Dates: start: 20240612
  3. CARBOPLATIN [Suspect]
     Active Substance: CARBOPLATIN
     Indication: Neuroendocrine tumour
     Dosage: EVERY 21 DAYS
     Dates: start: 20240612

REACTIONS (8)
  - Septic shock [Fatal]
  - Lactic acidosis [Unknown]
  - Neutropenia [Unknown]
  - Diarrhoea [Unknown]
  - Nausea [Unknown]
  - Dyspnoea [Unknown]
  - Bacterial infection [Unknown]
  - Anaemia [Unknown]

NARRATIVE: CASE EVENT DATE: 20240716
